FAERS Safety Report 4451357-7 (Version None)
Quarter: 2004Q3

REPORT INFORMATION
  Report Type: 
  Country: None (occurrence: None)
  Receive Date: 20040916
  Receipt Date: 20040907
  Transmission Date: 20050211
  Serious: Yes (Other)
  Sender: FDA-Public Use
  Company Number: ES-MERCK-0409USA00350

PATIENT
  Age: 16 Year
  Sex: Male

DRUGS (7)
  1. BLEOMYCIN [Suspect]
     Indication: BONE SARCOMA
     Route: 065
     Dates: start: 20000101, end: 20010101
  2. CARBOPLATIN [Suspect]
     Indication: BONE SARCOMA
     Route: 065
     Dates: start: 20000101, end: 20010101
  3. CISPLATIN [Suspect]
     Indication: BONE SARCOMA
     Route: 065
     Dates: start: 20000101, end: 20010101
  4. COSMOGEN [Suspect]
     Indication: BONE SARCOMA
     Route: 042
     Dates: start: 20000101, end: 20010101
  5. DOXORUBICIN [Suspect]
     Indication: BONE SARCOMA
     Route: 065
     Dates: start: 20000101, end: 20010101
  6. IFOSFAMIDE [Suspect]
     Indication: BONE SARCOMA
     Route: 065
     Dates: start: 20000101, end: 20010101
  7. METHOTREXATE [Suspect]
     Indication: BONE SARCOMA
     Route: 065
     Dates: start: 20000101, end: 20010101

REACTIONS (1)
  - ACUTE LEUKAEMIA [None]
